FAERS Safety Report 18942689 (Version 7)
Quarter: 2022Q2

REPORT INFORMATION
  Report Type: Report from Study
  Country: IN (occurrence: IN)
  Receive Date: 20210225
  Receipt Date: 20220425
  Transmission Date: 20220721
  Serious: Yes (Hospitalization, Other)
  Sender: FDA-Public Use
  Company Number: IN-002147023-NVSC2020IN289221

PATIENT

DRUGS (11)
  1. RUXOLITINIB [Suspect]
     Active Substance: RUXOLITINIB
     Indication: Primary myelofibrosis
     Dosage: 10 MG, BID
     Route: 048
     Dates: start: 20200911, end: 20201012
  2. RUXOLITINIB [Suspect]
     Active Substance: RUXOLITINIB
     Dosage: 5 MG, BID
     Route: 048
     Dates: start: 20201012
  3. RUXOLITINIB [Suspect]
     Active Substance: RUXOLITINIB
     Dosage: 5 MG, BID
     Route: 048
     Dates: start: 20201019, end: 20201210
  4. RUXOLITINIB [Suspect]
     Active Substance: RUXOLITINIB
     Dosage: 10 MG, BID
     Route: 048
     Dates: start: 20201210, end: 20210212
  5. RUXOLITINIB [Suspect]
     Active Substance: RUXOLITINIB
     Dosage: 15 MG, BID
     Route: 048
     Dates: start: 20210213, end: 20210621
  6. RUXOLITINIB [Suspect]
     Active Substance: RUXOLITINIB
     Dosage: 20 MG, BID
     Route: 048
     Dates: start: 20210621, end: 202203
  7. SHELCAL [CALCIUM CARBONATE;COLECALCIFEROL] [Concomitant]
     Indication: Product used for unknown indication
     Dosage: 1 DF, BID
     Route: 065
  8. ULTRACET [Concomitant]
     Active Substance: ACETAMINOPHEN\TRAMADOL HYDROCHLORIDE
     Indication: Product used for unknown indication
     Dosage: 1 DF, PRN
     Route: 065
  9. HYDROXYUREA [Concomitant]
     Active Substance: HYDROXYUREA
     Indication: Product used for unknown indication
     Dosage: 500 MG, BID
     Route: 065
     Dates: end: 20210620
  10. HYDROXYUREA [Concomitant]
     Active Substance: HYDROXYUREA
     Dosage: 500 MG, QD
     Route: 065
     Dates: start: 20210621
  11. AZACITIDINE [Concomitant]
     Active Substance: AZACITIDINE
     Indication: Product used for unknown indication
     Dosage: UNK
     Route: 065

REACTIONS (14)
  - Abdominal distension [Not Recovered/Not Resolved]
  - Oedema peripheral [Recovering/Resolving]
  - Malignant neoplasm progression [Not Recovered/Not Resolved]
  - Primary myelofibrosis [Not Recovered/Not Resolved]
  - Epistaxis [Recovering/Resolving]
  - Pyrexia [Recovered/Resolved]
  - Gastritis [Not Recovered/Not Resolved]
  - Haemoglobin decreased [Not Recovered/Not Resolved]
  - Platelet count decreased [Unknown]
  - Splenomegaly [Not Recovered/Not Resolved]
  - White blood cell count increased [Not Recovered/Not Resolved]
  - Dyspnoea [Recovered/Resolved]
  - Hepatosplenomegaly [Unknown]
  - Thrombocytopenia [Unknown]

NARRATIVE: CASE EVENT DATE: 20201005
